FAERS Safety Report 13603181 (Version 1)
Quarter: 2017Q2

REPORT INFORMATION
  Report Type: Report from Study
  Country: US (occurrence: US)
  Receive Date: 20170601
  Receipt Date: 20170601
  Transmission Date: 20170830
  Serious: Yes (Other)
  Sender: FDA-Public Use
  Company Number: US-BIOGEN-2017BI00408712

PATIENT
  Sex: Female

DRUGS (1)
  1. TECFIDERA [Suspect]
     Active Substance: DIMETHYL FUMARATE
     Indication: PRODUCT USED FOR UNKNOWN INDICATION
     Route: 048
     Dates: start: 201702

REACTIONS (6)
  - Hypoaesthesia [Not Recovered/Not Resolved]
  - Feeling hot [Unknown]
  - Flushing [Unknown]
  - Gastric disorder [Unknown]
  - Major depression [Unknown]
  - Fatigue [Unknown]
